FAERS Safety Report 9981077 (Version 1)
Quarter: 2014Q1

REPORT INFORMATION
  Report Type: Spontaneous
  Country: US (occurrence: None)
  Receive Date: 20140306
  Receipt Date: 20140306
  Transmission Date: 20141002
  Serious: Yes (Hospitalization)
  Sender: FDA-Public Use
  Company Number: None

PATIENT
  Age: 21 Year
  Sex: Female
  Weight: 81.47 kg

DRUGS (1)
  1. RELPAX (ELETRIPTAN HYDROBROMIDE) [Suspect]
     Indication: MIGRAINE
     Dosage: 40MG, 1 PILL ONCE EVERY RHRS.AS NEEDED, PO.
     Route: 048
     Dates: start: 20140207, end: 20140207

REACTIONS (22)
  - Headache [None]
  - Dizziness [None]
  - Nausea [None]
  - Gait disturbance [None]
  - Hypoaesthesia [None]
  - Loss of consciousness [None]
  - Fall [None]
  - Abasia [None]
  - Asthenia [None]
  - Vertigo [None]
  - Hypoaesthesia [None]
  - Muscle spasms [None]
  - Dyspnoea [None]
  - Sensation of heaviness [None]
  - Throat tightness [None]
  - Arthralgia [None]
  - Drooling [None]
  - Panic attack [None]
  - Hallucination, visual [None]
  - Convulsion [None]
  - Cerebrovascular accident [None]
  - Cognitive disorder [None]
